FAERS Safety Report 9437623 (Version 1)
Quarter: 2013Q3

REPORT INFORMATION
  Report Type: Spontaneous
  Country: JP (occurrence: JP)
  Receive Date: 20130802
  Receipt Date: 20130802
  Transmission Date: 20140515
  Serious: Yes (Death)
  Sender: FDA-Public Use
  Company Number: JP-PFIZER INC-2013223921

PATIENT
  Age: 87 Year
  Sex: Female

DRUGS (1)
  1. NOVASTAN [Suspect]
     Dosage: UNK
     Route: 051
     Dates: start: 20110714, end: 20130518

REACTIONS (1)
  - Gastrointestinal haemorrhage [Fatal]
